FAERS Safety Report 8294329-7 (Version None)
Quarter: 2012Q2

REPORT INFORMATION
  Report Type: 
  Country: None (occurrence: None)
  Receive Date: 20120418
  Receipt Date: 20120411
  Transmission Date: 20120825
  Serious: Yes (Other)
  Sender: FDA-Public Use
  Company Number: CN-BRISTOL-MYERS SQUIBB COMPANY-16516130

PATIENT
  Age: 71 Year
  Sex: Male

DRUGS (2)
  1. BARACLUDE [Suspect]
     Indication: HEPATIC CIRRHOSIS
  2. BARACLUDE [Suspect]
     Indication: HEPATITIS B

REACTIONS (3)
  - SPLENOMEGALY [None]
  - HEPATIC PAIN [None]
  - HEPATITIS B DNA INCREASED [None]
